FAERS Safety Report 18323249 (Version 1)
Quarter: 2020Q3

REPORT INFORMATION
  Report Type: Spontaneous
  Country: US (occurrence: US)
  Receive Date: 20200925
  Receipt Date: 20200925
  Transmission Date: 20201103
  Serious: No
  Sender: FDA-Public Use
  Company Number: None

PATIENT
  Age: 3 Month
  Sex: Female

DRUGS (5)
  1. 1125 ? DTAP + IPV + HIB (PENTACEL) [Concomitant]
     Dosage: ?          OTHER ROUTE:NEEDLE AND SYRINGE?
  2. 1141 ? PNEUMP (PREVNAR13) [Concomitant]
     Dosage: ?          OTHER ROUTE:NEEDLE AND SYRINGE?
  3. 1193?HEP B (HEPLISV?B) [Concomitant]
     Dosage: ?          OTHER ROUTE:NEEDLE AND SYRINE?
  4. SYNAGIS [Suspect]
     Active Substance: PALIVIZUMAB
     Route: 030
  5. 1096 ? ROTAVIRUS ROTATEQ) [Concomitant]
     Dosage: ?          OTHER ROUTE:PER ORAL ?PO?

REACTIONS (2)
  - Rash [None]
  - Urticaria [None]

NARRATIVE: CASE EVENT DATE: 20191218
